FAERS Safety Report 16396281 (Version 1)
Quarter: 2019Q2

REPORT INFORMATION
  Report Type: Report from Study
  Country: US (occurrence: US)
  Receive Date: 20190605
  Receipt Date: 20190605
  Transmission Date: 20190711
  Serious: Yes (Other)
  Sender: FDA-Public Use
  Company Number: US-GILEAD-2019-0412012

PATIENT
  Age: 69 Year
  Sex: Male

DRUGS (2)
  1. RANOLAZINE. [Suspect]
     Active Substance: RANOLAZINE
     Indication: ANGINA PECTORIS
     Dosage: 1000 MG, BID
     Route: 048
     Dates: start: 201701, end: 20190421
  2. RANOLAZINE. [Suspect]
     Active Substance: RANOLAZINE
     Dosage: 1000 MG, BID
     Route: 048
     Dates: start: 20190521

REACTIONS (3)
  - Product use issue [Recovered/Resolved]
  - Pancreatitis acute [Not Recovered/Not Resolved]
  - Pancreatolithiasis [Not Recovered/Not Resolved]

NARRATIVE: CASE EVENT DATE: 201901
